FAERS Safety Report 16396480 (Version 1)
Quarter: 2019Q2

REPORT INFORMATION
  Report Type: Spontaneous
  Country: FR (occurrence: FR)
  Receive Date: 20190605
  Receipt Date: 20190605
  Transmission Date: 20190711
  Serious: Yes (Hospitalization)
  Sender: FDA-Public Use
  Company Number: FR-ROCHE-2328971

PATIENT
  Age: 84 Year
  Sex: Female
  Weight: 59 kg

DRUGS (3)
  1. AVASTIN [Suspect]
     Active Substance: BEVACIZUMAB
     Indication: OVARIAN EPITHELIAL CANCER
     Dosage: MOST RECENT DOSE PRIOR TO AE: 11/DEC/2012
     Route: 042
     Dates: start: 20121120
  2. CARBOPLATINE [Suspect]
     Active Substance: CARBOPLATIN
     Indication: OVARIAN EPITHELIAL CANCER
     Dosage: MOST RECENT DOSE PRIOR TO AE: 09/APR/2013
     Route: 042
     Dates: start: 20121120
  3. PACLITAXEL. [Suspect]
     Active Substance: PACLITAXEL
     Indication: OVARIAN EPITHELIAL CANCER
     Dosage: MOST RECENT DOSE PRIOR TO AE: 09/APR/2013
     Route: 042
     Dates: start: 20121120

REACTIONS (2)
  - Bicytopenia [Recovered/Resolved]
  - Anaemia [Recovered/Resolved]

NARRATIVE: CASE EVENT DATE: 20130114
